FAERS Safety Report 4381667-3 (Version None)
Quarter: 2004Q2

REPORT INFORMATION
  Report Type: 
  Country: None (occurrence: None)
  Receive Date: 20040603
  Receipt Date: 20030919
  Transmission Date: 20050107
  Serious: Yes (Other)
  Sender: FDA-Public Use
  Company Number: 200318315US

PATIENT

DRUGS (2)
  1. LOVENOX [Suspect]
     Dosage: 100 MG BID
     Dates: start: 20030919
  2. WARFARIN SODIUM [Concomitant]

REACTIONS (1)
  - SKIN NECROSIS [None]
